FAERS Safety Report 24692235 (Version 1)
Quarter: 2024Q4

REPORT INFORMATION
  Report Type: Spontaneous
  Country: FR (occurrence: FR)
  Receive Date: 20241203
  Receipt Date: 20241203
  Transmission Date: 20250115
  Serious: Yes (Life-Threatening, Hospitalization, Other)
  Sender: ALEXION PHARMACEUTICALS
  Company Number: FR-ASTRAZENECA-202411GLO026592FR

PATIENT
  Weight: 60 kg

DRUGS (16)
  1. QUETIAPINE FUMARATE [Suspect]
     Active Substance: QUETIAPINE FUMARATE
     Indication: Schizoaffective disorder
     Dosage: 300 MILLIGRAM, QD,1 IN THE EVENING
  2. QUETIAPINE FUMARATE [Suspect]
     Active Substance: QUETIAPINE FUMARATE
     Indication: Drug dependence
     Dosage: 300 MILLIGRAM, QD,1 IN THE EVENING
  3. QUETIAPINE FUMARATE [Suspect]
     Active Substance: QUETIAPINE FUMARATE
     Dosage: 300 MILLIGRAM, QD,1 IN THE EVENING
  4. QUETIAPINE FUMARATE [Suspect]
     Active Substance: QUETIAPINE FUMARATE
     Dosage: 300 MILLIGRAM, QD,1 IN THE EVENING
  5. QUETIAPINE FUMARATE [Suspect]
     Active Substance: QUETIAPINE FUMARATE
     Dosage: 400 MILLIGRAM, QD,1 IN THE EVENING
  6. QUETIAPINE FUMARATE [Suspect]
     Active Substance: QUETIAPINE FUMARATE
     Dosage: 400 MILLIGRAM, QD,1 IN THE EVENING
  7. QUETIAPINE FUMARATE [Suspect]
     Active Substance: QUETIAPINE FUMARATE
     Dosage: 400 MILLIGRAM, QD,1 IN THE EVENING
  8. QUETIAPINE FUMARATE [Suspect]
     Active Substance: QUETIAPINE FUMARATE
     Dosage: 400 MILLIGRAM, QD,1 IN THE EVENING
  9. COCAINE [Suspect]
     Active Substance: COCAINE
     Indication: Drug dependence
     Dosage: IN LARGE QUANTITIES
  10. COCAINE [Suspect]
     Active Substance: COCAINE
     Dosage: IN LARGE QUANTITIES
  11. PAROXETINE [Suspect]
     Active Substance: PAROXETINE
     Indication: Schizoaffective disorder
     Dosage: 20 MILLIGRAM, QD
  12. PAROXETINE [Suspect]
     Active Substance: PAROXETINE
     Dosage: 20 MILLIGRAM, QD
  13. LOXAPINE [Suspect]
     Active Substance: LOXAPINE
     Indication: Agitation
     Dosage: 100 MILLIGRAM, QD
  14. LOXAPINE [Suspect]
     Active Substance: LOXAPINE
     Dosage: 100 MILLIGRAM, QD
  15. ALPRAZOLAM [Concomitant]
     Active Substance: ALPRAZOLAM
     Dosage: 1 IN THE MORING AND 1 IN THE EVENING
  16. ZOPICLONE [Concomitant]
     Active Substance: ZOPICLONE
     Dosage: 0.5 AT 10

REACTIONS (15)
  - Agitation [Recovered/Resolved]
  - Neuroleptic malignant syndrome [Recovered/Resolved]
  - Rhabdomyolysis [Recovered/Resolved]
  - Acute kidney injury [Recovered/Resolved]
  - Hepatic failure [Recovered/Resolved]
  - Stress cardiomyopathy [Recovered/Resolved]
  - Hyperkalaemia [Recovering/Resolving]
  - Acute pulmonary oedema [Recovering/Resolving]
  - Ejection fraction decreased [Recovering/Resolving]
  - Hypokinesia [Recovering/Resolving]
  - Hypothyroidism [Recovering/Resolving]
  - Myoclonus [Recovering/Resolving]
  - Hyperthermia [Recovering/Resolving]
  - Abdominal pain [Recovering/Resolving]
  - Drug abuse [Recovered/Resolved]
